FAERS Safety Report 10601556 (Version 1)
Quarter: 2014Q4

REPORT INFORMATION
  Report Type: Spontaneous
  Country: US (occurrence: US)
  Receive Date: 20141124
  Receipt Date: 20141124
  Transmission Date: 20150529
  Serious: No
  Sender: FDA-Public Use
  Company Number: US-009507513-1410USA014250

PATIENT
  Age: 24 Year
  Sex: Female
  Weight: 53.52 kg

DRUGS (1)
  1. NUVARING [Suspect]
     Active Substance: ETHINYL ESTRADIOL\ETONOGESTREL
     Indication: CONTRACEPTION
     Dosage: 1 RING, QM (3 WEEKS IN, 1 WEEK OUT)
     Route: 067
     Dates: start: 20141002

REACTIONS (5)
  - Breast tenderness [Unknown]
  - Inappropriate schedule of drug administration [Unknown]
  - Amenorrhoea [Unknown]
  - Muscle spasms [Unknown]
  - Swelling [Unknown]

NARRATIVE: CASE EVENT DATE: 201410
